FAERS Safety Report 4736408-4 (Version None)
Quarter: 2005Q3

REPORT INFORMATION
  Report Type: 
  Country: None (occurrence: None)
  Receive Date: 20050804
  Receipt Date: 20050725
  Transmission Date: 20060218
  Serious: Yes (Hospitalization, Other)
  Sender: FDA-Public Use
  Company Number: 2005068966

PATIENT
  Age: 24 Year
  Sex: Male

DRUGS (2)
  1. GEODON [Suspect]
     Indication: ILL-DEFINED DISORDER
     Dosage: 60 MG (60 MG, 1 IN 1 D)
     Dates: start: 20050118, end: 20050120
  2. GEODON [Suspect]
     Indication: SCHIZOPHRENIA
     Dosage: 60 MG (60 MG, 1 IN 1 D)
     Dates: start: 20050118, end: 20050120

REACTIONS (5)
  - DRUG HYPERSENSITIVITY [None]
  - DYSPNOEA [None]
  - DYSTONIA [None]
  - SUFFOCATION FEELING [None]
  - SWOLLEN TONGUE [None]
